FAERS Safety Report 6837961-7 (Version None)
Quarter: 2010Q3

REPORT INFORMATION
  Report Type: 
  Country: None (occurrence: None)
  Receive Date: 20100713
  Receipt Date: 20070430
  Transmission Date: 20110219
  Serious: No
  Sender: FDA-Public Use
  Company Number: US-PFIZER INC-2007035167

PATIENT
  Age: 79 Year
  Sex: Female

DRUGS (5)
  1. CHANTIX [Suspect]
     Indication: SMOKING CESSATION THERAPY
     Dates: start: 20070201
  2. SEREVENT [Concomitant]
  3. ATROVENT [Concomitant]
  4. XANAX [Concomitant]
  5. PHYTOMENADIONE [Concomitant]

REACTIONS (1)
  - DYSGEUSIA [None]
